FAERS Safety Report 22913183 (Version 2)
Quarter: 2023Q4

REPORT INFORMATION
  Report Type: Report from Study
  Country: ZA (occurrence: ZA)
  Receive Date: 20230906
  Receipt Date: 20231019
  Transmission Date: 20240109
  Serious: Yes (Other)
  Sender: FDA-Public Use
  Company Number: ZA-SA-SAC20230725000558

PATIENT
  Sex: Male

DRUGS (2)
  1. INSULIN GLARGINE [Suspect]
     Active Substance: INSULIN GLARGINE
     Indication: Diabetes mellitus
     Dosage: 8 IU, QD, BT
     Route: 058
     Dates: start: 20230629
  2. INSULIN GLARGINE [Suspect]
     Active Substance: INSULIN GLARGINE
     Dosage: 6 IU, QD, BB
     Route: 058
     Dates: start: 2023

REACTIONS (7)
  - Suicidal ideation [Recovered/Resolved]
  - Post procedural complication [Not Recovered/Not Resolved]
  - Pain in extremity [Recovering/Resolving]
  - Hyperglycaemia [Recovering/Resolving]
  - Rash [Recovered/Resolved]
  - Peripheral swelling [Recovering/Resolving]
  - Foot operation [Unknown]

NARRATIVE: CASE EVENT DATE: 20230101
